FAERS Safety Report 14454732 (Version 4)
Quarter: 2019Q1

REPORT INFORMATION
  Report Type: Spontaneous
  Country: US (occurrence: US)
  Receive Date: 20180129
  Receipt Date: 20190128
  Transmission Date: 20190417
  Serious: Yes (Hospitalization)
  Sender: FDA-Public Use
  Company Number: US-DSJP-DSU-2017-137741

PATIENT

DRUGS (2)
  1. BENICAR HCT [Suspect]
     Active Substance: HYDROCHLOROTHIAZIDE\OLMESARTAN MEDOXOMIL
     Dosage: 40/12.5 MG, QD
     Dates: end: 20111009
  2. BENICAR HCT [Suspect]
     Active Substance: HYDROCHLOROTHIAZIDE\OLMESARTAN MEDOXOMIL
     Indication: HYPERTENSION
     Dosage: 40/12.5 MG HALF TABLET,QD
     Route: 048
     Dates: end: 20111009

REACTIONS (4)
  - Sprue-like enteropathy [Recovering/Resolving]
  - Product administration error [Unknown]
  - Intestinal angioedema [Unknown]
  - Inflammatory bowel disease [Recovering/Resolving]

NARRATIVE: CASE EVENT DATE: 20110901
